FAERS Safety Report 6434836-2 (Version None)
Quarter: 2009Q4

REPORT INFORMATION
  Report Type: 
  Country: None (occurrence: None)
  Receive Date: 20091110
  Receipt Date: 20091105
  Transmission Date: 20100525
  Serious: Yes (Death)
  Sender: FDA-Public Use
  Company Number: US-JNJFOC-20091102256

PATIENT
  Sex: Male

DRUGS (1)
  1. DURAGESIC-100 [Suspect]
     Indication: INTENTIONAL DRUG MISUSE
     Route: 042

REACTIONS (4)
  - DRUG DIVERSION [None]
  - INTENTIONAL DRUG MISUSE [None]
  - OVERDOSE [None]
  - RESPIRATORY DEPRESSION [None]
